FAERS Safety Report 24372139 (Version 1)
Quarter: 2024Q3

REPORT INFORMATION
  Report Type: Spontaneous
  Country: FR (occurrence: FR)
  Receive Date: 20240927
  Receipt Date: 20240927
  Transmission Date: 20241016
  Serious: Yes (Hospitalization, Other)
  Sender: CHEPLAPHARM
  Company Number: None

PATIENT
  Age: 30 Year
  Sex: Male

DRUGS (8)
  1. OLANZAPINE [Suspect]
     Active Substance: OLANZAPINE
     Indication: Bipolar disorder
     Dosage: 12.5 MG IN THE EVENING ?DAILY DOSE: 12.5 MILLIGRAM
     Route: 048
     Dates: end: 20240823
  2. NALTREXONE [Suspect]
     Active Substance: NALTREXONE
     Indication: Alcoholism
     Dosage: 50 MG IN THE EVENING ?DAILY DOSE: 50 MILLIGRAM
     Route: 048
     Dates: start: 202401, end: 20240821
  3. CYAMEMAZINE [Suspect]
     Active Substance: CYAMEMAZINE
     Indication: Anxiety
     Dosage: 1 TABLET IN THE MORNING AND 2 TABLETS IN THE EVENING ?DAILY DOSE: 75 DOSAGE FORM
     Route: 048
  4. CYAMEMAZINE [Suspect]
     Active Substance: CYAMEMAZINE
     Indication: Anxiety
     Dosage: DOSE REDUCED TO 25 MG?DAILY DOSE: 25 MILLIGRAM
     Route: 048
  5. VALIUM [Suspect]
     Active Substance: DIAZEPAM
     Indication: Anxiety
     Dosage: 10 MG IN THE EVENING AT BEDTIME ?DAILY DOSE: 10 MILLIGRAM
     Route: 048
  6. TROPATEPINE HYDROCHLORIDE [Suspect]
     Active Substance: TROPATEPINE HYDROCHLORIDE
     Indication: Extrapyramidal disorder
     Dosage: 10 MG IN THE MORNING ?DAILY DOSE: 1 DOSAGE FORM
     Route: 048
  7. ARTISIAL [Suspect]
     Active Substance: CALCIUM CHLORIDE\MAGNESIUM CHLORIDE\POTASSIUM CHLORIDE\POTASSIUM PHOSPHATE, DIBASIC\POTASSIUM PHOSPH
     Dosage: SPRAY MORNING, NOON, EVENING AND AT BEDTIME
  8. CHOLECALCIFEROL [Suspect]
     Active Substance: CHOLECALCIFEROL
     Dosage: 50000 1 AMPOULE EVERY MONTH

REACTIONS (3)
  - Pancreatitis acute [Unknown]
  - Pancreatitis acute [Recovered/Resolved]
  - Clostridium difficile infection [Unknown]

NARRATIVE: CASE EVENT DATE: 20240501
